FAERS Safety Report 23966084 (Version 4)
Quarter: 2025Q2

REPORT INFORMATION
  Report Type: Report from Study
  Country: CN (occurrence: CN)
  Receive Date: 20240612
  Receipt Date: 20250509
  Transmission Date: 20250716
  Serious: Yes (Other)
  Sender: ROCHE
  Company Number: CN-ROCHE-3569065

PATIENT
  Age: 73 Year
  Sex: Female
  Weight: 49 kg

DRUGS (42)
  1. POLATUZUMAB VEDOTIN [Suspect]
     Active Substance: POLATUZUMAB VEDOTIN
     Indication: Diffuse large B-cell lymphoma
     Dosage: C1
     Route: 042
     Dates: start: 20231020
  2. POLATUZUMAB VEDOTIN [Suspect]
     Active Substance: POLATUZUMAB VEDOTIN
     Dosage: C2
     Route: 042
     Dates: start: 20231116
  3. POLATUZUMAB VEDOTIN [Suspect]
     Active Substance: POLATUZUMAB VEDOTIN
     Route: 042
     Dates: start: 20231208
  4. POLATUZUMAB VEDOTIN [Suspect]
     Active Substance: POLATUZUMAB VEDOTIN
     Dosage: C4
     Route: 042
     Dates: start: 20231231
  5. RITUXIMAB [Suspect]
     Active Substance: RITUXIMAB
     Indication: Diffuse large B-cell lymphoma
     Route: 042
  6. RITUXIMAB [Suspect]
     Active Substance: RITUXIMAB
     Route: 042
  7. RITUXIMAB [Suspect]
     Active Substance: RITUXIMAB
     Route: 042
  8. CYCLOPHOSPHAMIDE [Suspect]
     Active Substance: CYCLOPHOSPHAMIDE
     Indication: Diffuse large B-cell lymphoma
     Route: 042
     Dates: start: 20231021, end: 20231021
  9. DOXORUBICIN [Suspect]
     Active Substance: DOXORUBICIN
     Indication: Diffuse large B-cell lymphoma
     Route: 042
     Dates: start: 20231021, end: 20231021
  10. METHYLPREDNISOLONE [Suspect]
     Active Substance: METHYLPREDNISOLONE
     Indication: Diffuse large B-cell lymphoma
     Route: 048
     Dates: start: 20231021, end: 20231023
  11. METHYLPREDNISOLONE [Suspect]
     Active Substance: METHYLPREDNISOLONE
     Route: 048
     Dates: start: 20231024, end: 20231024
  12. Potassium chloride injection 10% [Concomitant]
     Indication: Prophylaxis
     Route: 048
     Dates: start: 20231013, end: 20231013
  13. Potassium chloride injection 10% [Concomitant]
     Route: 042
     Dates: start: 20231013, end: 20231013
  14. Potassium chloride injection 10% [Concomitant]
     Route: 048
     Dates: start: 20231012, end: 20231012
  15. Potassium chloride injection 10% [Concomitant]
     Route: 042
     Dates: start: 20231015, end: 20231016
  16. Potassium chloride injection 10% [Concomitant]
     Route: 042
     Dates: start: 20231015, end: 20231017
  17. Potassium chloride injection 10% [Concomitant]
     Dates: start: 20231019, end: 20231019
  18. FUROSEMIDE [Concomitant]
     Active Substance: FUROSEMIDE
     Indication: Polyuria
     Route: 042
     Dates: start: 20231001, end: 202310
  19. FUROSEMIDE [Concomitant]
     Active Substance: FUROSEMIDE
     Route: 042
     Dates: start: 20231020, end: 20231020
  20. Omeprazole sodium for injection [Concomitant]
     Route: 042
     Dates: start: 20231001
  21. Moxifloxacin hydrochloride sodium chloride injection [Concomitant]
     Route: 042
     Dates: start: 20231001
  22. AMBROXOL HYDROCHLORIDE [Concomitant]
     Active Substance: AMBROXOL HYDROCHLORIDE
     Route: 042
     Dates: start: 20231012
  23. NIACINAMIDE [Concomitant]
     Active Substance: NIACINAMIDE
     Route: 042
     Dates: start: 20231013, end: 20231017
  24. NIACINAMIDE [Concomitant]
     Active Substance: NIACINAMIDE
     Route: 042
     Dates: start: 20231012, end: 20231012
  25. ASCORBIC ACID [Concomitant]
     Active Substance: ASCORBIC ACID
     Route: 042
     Dates: start: 20231015, end: 20231018
  26. METHYLPREDNISOLONE SODIUM SUCCINATE [Concomitant]
     Active Substance: METHYLPREDNISOLONE SODIUM SUCCINATE
     Route: 042
     Dates: start: 20231020, end: 20231023
  27. METHYLPREDNISOLONE SODIUM SUCCINATE [Concomitant]
     Active Substance: METHYLPREDNISOLONE SODIUM SUCCINATE
     Route: 042
     Dates: start: 20231024, end: 20231024
  28. Sodium bicarbonate injection 5% [Concomitant]
     Route: 042
     Dates: start: 20231020, end: 20231022
  29. 30mg ambroxol hydrochloride injection [Concomitant]
     Route: 042
     Dates: start: 20231021, end: 20231024
  30. Ivabradine hydrochloride tablets [Concomitant]
     Route: 048
     Dates: start: 20231020, end: 20231026
  31. Akynzeo [Concomitant]
     Route: 048
     Dates: start: 20231021, end: 20231021
  32. URSODIOL [Concomitant]
     Active Substance: URSODIOL
     Route: 048
     Dates: start: 20231022, end: 20231031
  33. Ruxolitinib Phosphate Tablets [Concomitant]
     Route: 048
     Dates: start: 20231024, end: 20231031
  34. LIDOCAINE HYDROCHLORIDE [Concomitant]
     Active Substance: LIDOCAINE HYDROCHLORIDE
     Route: 058
     Dates: start: 20231013, end: 20231013
  35. Dopamine hydrochloride injection [Concomitant]
     Dates: start: 20231014, end: 20231014
  36. IBUPROFEN [Concomitant]
     Active Substance: IBUPROFEN
     Indication: Analgesic therapy
     Route: 048
     Dates: start: 20231020, end: 20231020
  37. CETIRIZINE [Concomitant]
     Active Substance: CETIRIZINE HYDROCHLORIDE
     Route: 048
     Dates: start: 20231020, end: 20231020
  38. DEXAMETHASONE SODIUM PHOSPHATE [Concomitant]
     Active Substance: DEXAMETHASONE SODIUM PHOSPHATE
     Route: 042
     Dates: start: 20231029, end: 20231029
  39. DEXAMETHASONE SODIUM PHOSPHATE [Concomitant]
     Active Substance: DEXAMETHASONE SODIUM PHOSPHATE
     Dosage: OTHER ROUTE OF MEDICATION ADMIN- MICRO PUMP INJECTION
     Dates: start: 20231026, end: 20231027
  40. Sodium lactate Ringer injection [Concomitant]
     Route: 042
     Dates: start: 20231031, end: 20231031
  41. Cortisone acetate tablets [Concomitant]
     Route: 048
     Dates: start: 20231028, end: 20231104
  42. ACYCLOVIR [Concomitant]
     Active Substance: ACYCLOVIR
     Dates: start: 20231104, end: 20231104

REACTIONS (27)
  - Haemophagocytic lymphohistiocytosis [Recovered/Resolved]
  - Platelet count decreased [Recovered/Resolved]
  - Anaemia [Recovering/Resolving]
  - Leukopenia [Recovering/Resolving]
  - White blood cell count decreased [Recovered/Resolved]
  - Lymphocyte count decreased [Recovered/Resolved]
  - Neutrophil count decreased [Recovered/Resolved]
  - Hypernatraemia [Recovered/Resolved]
  - Hypomagnesaemia [Recovered/Resolved]
  - Hyperuricaemia [Recovered/Resolved]
  - Hypocalcaemia [Recovered/Resolved]
  - Gamma-glutamyltransferase increased [Recovered/Resolved]
  - Hypokalaemia [Recovered/Resolved]
  - Gastrointestinal haemorrhage [Recovered/Resolved]
  - Mouth ulceration [Not Recovered/Not Resolved]
  - Deep vein thrombosis [Not Recovered/Not Resolved]
  - Hypoproteinaemia [Recovered/Resolved]
  - Alanine aminotransferase increased [Recovered/Resolved]
  - Hyperkalaemia [Recovered/Resolved]
  - Blood alkaline phosphatase increased [Not Recovered/Not Resolved]
  - Aspergillus infection [Not Recovered/Not Resolved]
  - Hepatitis B surface antibody positive [Not Recovered/Not Resolved]
  - Hepatitis B e antibody positive [Not Recovered/Not Resolved]
  - Hepatitis B core antibody positive [Not Recovered/Not Resolved]
  - Aspartate aminotransferase increased [Recovered/Resolved]
  - COVID-19 [Recovered/Resolved]
  - Gastrointestinal disorder [Not Recovered/Not Resolved]

NARRATIVE: CASE EVENT DATE: 20231021
